FAERS Safety Report 8347931-8 (Version None)
Quarter: 2012Q1

REPORT INFORMATION
  Report Type: 
  Country: None (occurrence: None)
  Receive Date: 20120315
  Receipt Date: 20110413
  Transmission Date: 20120608
  Serious: No
  Sender: FDA-Public Use
  Company Number: PHHY2011US33041

PATIENT
  Age: 46 Year
  Sex: Female

DRUGS (8)
  1. GILENYA [Suspect]
     Dosage: 0.5 MG, EVERY DAY, ORAL
     Route: 048
  2. ENABLEX [Concomitant]
  3. CITALOPRAM (CITALOPRAM) TABLET [Concomitant]
  4. RANITIDINE (RANITIDINE) TABLET [Concomitant]
  5. SINGULAIR [Concomitant]
  6. ZETIA (EZETIMIBE) TABLET [Concomitant]
  7. ASPIRIN [Concomitant]
  8. CLIMARA [Concomitant]

REACTIONS (1)
  - DYSKINESIA [None]
